FAERS Safety Report 7790993-7 (Version None)
Quarter: 2011Q4

REPORT INFORMATION
  Report Type: 
  Country: None (occurrence: None)
  Receive Date: 20111002
  Receipt Date: 20110928
  Transmission Date: 20120403
  Serious: Yes (Other)
  Sender: FDA-Public Use
  Company Number: GB-BRISTOL-MYERS SQUIBB COMPANY-16047383

PATIENT
  Age: 19 Year
  Sex: Male

DRUGS (8)
  1. CLOZAPINE [Interacting]
     Dosage: 1 DF= 200MG IN THE MORNING AND 125 MG AT NIGHT
     Route: 048
     Dates: start: 20101224
  2. ARIPIPRAZOLE [Suspect]
     Indication: PSYCHOTIC DISORDER
     Dosage: CONCOMITANTLY 10MG
     Route: 048
     Dates: start: 20100301
  3. FLUOXETINE [Concomitant]
     Indication: OBSESSIVE-COMPULSIVE DISORDER
     Route: 048
     Dates: start: 20080601
  4. SENNA PLUS [Concomitant]
     Indication: CONSTIPATION
     Dosage: TABS
     Route: 048
     Dates: start: 20110201
  5. FLUOXETINE [Concomitant]
     Indication: ANXIETY
     Route: 048
     Dates: start: 20080601
  6. KWELL [Concomitant]
     Indication: SALIVARY HYPERSECRETION
     Route: 048
     Dates: start: 20110201
  7. LACTULOSE [Concomitant]
     Indication: CONSTIPATION
     Route: 048
     Dates: start: 20110201
  8. LORAZEPAM [Concomitant]
     Indication: AGITATION
     Route: 048
     Dates: start: 20101201

REACTIONS (3)
  - HYPOTHERMIA [None]
  - DRUG INTERACTION [None]
  - BODY TEMPERATURE INCREASED [None]
